FAERS Safety Report 11775248 (Version 1)
Quarter: 2015Q4

REPORT INFORMATION
  Report Type: Spontaneous
  Country: CH (occurrence: CH)
  Receive Date: 20151124
  Receipt Date: 20151124
  Transmission Date: 20160304
  Serious: Yes (Other)
  Sender: FDA-Public Use
  Company Number: CH-JNJFOC-20151119996

PATIENT
  Age: 23 Year
  Sex: Male

DRUGS (1)
  1. CONCERTA [Suspect]
     Active Substance: METHYLPHENIDATE HYDROCHLORIDE
     Indication: ATTENTION DEFICIT/HYPERACTIVITY DISORDER
     Route: 048
     Dates: start: 20151108

REACTIONS (4)
  - Anxiety [Recovering/Resolving]
  - Visual impairment [Recovering/Resolving]
  - Nightmare [Recovering/Resolving]
  - Tic [Recovering/Resolving]

NARRATIVE: CASE EVENT DATE: 20151109
